FAERS Safety Report 7476289-1 (Version None)
Quarter: 2011Q2

REPORT INFORMATION
  Report Type: 
  Country: None (occurrence: None)
  Receive Date: 20110510
  Receipt Date: 20110510
  Transmission Date: 20111010
  Serious: No
  Sender: FDA-Public Use
  Company Number: None

PATIENT
  Sex: Male

DRUGS (2)
  1. PRILOSEC [Suspect]
     Indication: BARRETT'S OESOPHAGUS
     Dosage: PRILOSEC 20 BID ORAL
     Route: 048
     Dates: start: 20030721
  2. NEXIUM [Suspect]
     Indication: BARRETT'S OESOPHAGUS
     Dosage: NEXIUM 40MG BID ORAL
     Route: 048
     Dates: start: 20050503

REACTIONS (1)
  - DRUG INEFFECTIVE [None]
